FAERS Safety Report 15690565 (Version 1)
Quarter: 2018Q4

REPORT INFORMATION
  Report Type: Spontaneous
  Country: US (occurrence: US)
  Receive Date: 20181205
  Receipt Date: 20181205
  Transmission Date: 20190205
  Serious: Yes (Other)
  Sender: FDA-Public Use
  Company Number: US-ASTRAZENECA-2006UW12135

PATIENT
  Age: 41 Year
  Sex: Female
  Weight: 160.6 kg

DRUGS (16)
  1. ZYPREXA [Concomitant]
     Active Substance: OLANZAPINE
  2. ZANTAC [Concomitant]
     Active Substance: RANITIDINE HYDROCHLORIDE
     Dates: start: 20051203
  3. NORVASC [Concomitant]
     Active Substance: AMLODIPINE BESYLATE
     Dates: start: 20040316
  4. WELLBUTRIN [Concomitant]
     Active Substance: BUPROPION HYDROCHLORIDE
     Dosage: 300.0MG UNKNOWN
     Dates: start: 20040317
  5. SYNTHROID [Concomitant]
     Active Substance: LEVOTHYROXINE SODIUM
     Dates: start: 20050527
  6. GLUCOPHAGE [Concomitant]
     Active Substance: METFORMIN HYDROCHLORIDE
     Dates: start: 20050527
  7. GEODON [Concomitant]
     Active Substance: ZIPRASIDONE HYDROCHLORIDE\ZIPRASIDONE MESYLATE
  8. PROZAC [Concomitant]
     Active Substance: FLUOXETINE HYDROCHLORIDE
     Dates: start: 20000420
  9. LOTENSIN [Concomitant]
     Active Substance: BENAZEPRIL HYDROCHLORIDE
     Dosage: 20.0MG UNKNOWN
     Dates: start: 20040317
  10. RESTORIL [Concomitant]
     Active Substance: TEMAZEPAM
  11. ALBUTEROL. [Concomitant]
     Active Substance: ALBUTEROL
     Dates: start: 20050527
  12. SEROQUEL [Suspect]
     Active Substance: QUETIAPINE FUMARATE
     Indication: MENTAL DISORDER
     Route: 048
     Dates: start: 200208, end: 2006
  13. SEROQUEL [Suspect]
     Active Substance: QUETIAPINE FUMARATE
     Indication: MENTAL DISORDER
     Dosage: 50.0MG UNKNOWN
     Route: 048
     Dates: start: 20040316
  14. RISPERDAL [Concomitant]
     Active Substance: RISPERIDONE
  15. TOPAMAX [Concomitant]
     Active Substance: TOPIRAMATE
     Indication: WEIGHT CONTROL
  16. MAXZIDE [Concomitant]
     Active Substance: HYDROCHLOROTHIAZIDE\TRIAMTERENE
     Dates: start: 20000420

REACTIONS (3)
  - Diabetes mellitus [Unknown]
  - Type 2 diabetes mellitus [Unknown]
  - Tubulointerstitial nephritis [Unknown]

NARRATIVE: CASE EVENT DATE: 2005
